FAERS Safety Report 17122197 (Version 9)
Quarter: 2021Q2

REPORT INFORMATION
  Report Type: Spontaneous
  Country: US (occurrence: US)
  Receive Date: 20191206
  Receipt Date: 20210520
  Transmission Date: 20210716
  Serious: No
  Sender: FDA-Public Use
  Company Number: US-PFIZER INC-2019527048

PATIENT
  Age: 72 Year
  Sex: Female
  Weight: 55 kg

DRUGS (1)
  1. PRISTIQ EXTENDED?RELEASE [Suspect]
     Active Substance: DESVENLAFAXINE SUCCINATE
     Indication: DEPRESSION
     Dosage: 100 MG, 1X/DAY
     Route: 048

REACTIONS (8)
  - Nervousness [Unknown]
  - Speech disorder [Unknown]
  - Feeling abnormal [Unknown]
  - Product dispensing error [Unknown]
  - Withdrawal syndrome [Unknown]
  - Fibromyalgia [Unknown]
  - Memory impairment [Unknown]
  - Drug dispensed to wrong patient [Unknown]
